FAERS Safety Report 5533476-7 (Version None)
Quarter: 2007Q4

REPORT INFORMATION
  Report Type: 
  Country: None (occurrence: None)
  Receive Date: 20071120
  Receipt Date: 20070808
  Transmission Date: 20080405
  Serious: No
  Sender: FDA-Public Use
  Company Number: WAES 0705USA04138

PATIENT
  Age: 72 Year
  Sex: Female

DRUGS (5)
  1. JANUVIA [Suspect]
     Indication: TYPE 2 DIABETES MELLITUS
     Dosage: 100 MG/DAILY/PO
     Route: 048
     Dates: start: 20070512, end: 20070101
  2. AVANDAMET [Concomitant]
  3. BENICAR HCT [Concomitant]
  4. SYNTHROID [Concomitant]
  5. METOPROLOL [Concomitant]

REACTIONS (2)
  - LIP SWELLING [None]
  - RASH [None]
